FAERS Safety Report 9857517 (Version 3)
Quarter: 2014Q1

REPORT INFORMATION
  Report Type: Spontaneous
  Country: DE (occurrence: DE)
  Receive Date: 20140131
  Receipt Date: 20140307
  Transmission Date: 20141002
  Serious: Yes (Other)
  Sender: FDA-Public Use
  Company Number: PHHY2013DE149336

PATIENT
  Age: 72 Year
  Sex: Male

DRUGS (5)
  1. EXFORGE [Suspect]
     Dosage: 1 DF (80 MG VALS/ 5 MG AMLO), QD
  2. EXFORGE [Suspect]
     Dosage: 1 DF (160 MG VALS/ 5 MG AMLO), BID
     Dates: start: 201210
  3. CLOPIDOGREL [Concomitant]
     Dosage: UNK UKN, UNK
     Dates: end: 20131012
  4. ASS [Concomitant]
     Dosage: 100 MG, UNK
  5. ATORVASTATIN [Concomitant]
     Dosage: 0.5 MG, UNK

REACTIONS (6)
  - Silent myocardial infarction [Unknown]
  - Troponin increased [Unknown]
  - Fatigue [Unknown]
  - Asthenia [Unknown]
  - Dizziness [Unknown]
  - Nausea [Unknown]
